FAERS Safety Report 21905130 (Version 4)
Quarter: 2025Q1

REPORT INFORMATION
  Report Type: Spontaneous
  Country: US (occurrence: US)
  Receive Date: 20230124
  Receipt Date: 20250102
  Transmission Date: 20250408
  Serious: No
  Sender: PFIZER
  Company Number: US-PFIZER INC-202300029191

PATIENT
  Age: 71 Year
  Sex: Female
  Weight: 53.52 kg

DRUGS (5)
  1. PRISTIQ EXTENDED-RELEASE [Suspect]
     Active Substance: DESVENLAFAXINE SUCCINATE
     Indication: Osteoporosis
     Dosage: 50 MG, 1X/DAY
     Route: 048
  2. PRISTIQ EXTENDED-RELEASE [Suspect]
     Active Substance: DESVENLAFAXINE SUCCINATE
     Indication: Cardiac disorder
     Route: 048
  3. PREMARIN [Concomitant]
     Active Substance: ESTROGENS, CONJUGATED
  4. CODEINE [Concomitant]
     Active Substance: CODEINE
  5. NEOMYCIN SULFATE\POLYMYXIN B SULFATE [Concomitant]
     Active Substance: NEOMYCIN SULFATE\POLYMYXIN B SULFATE

REACTIONS (3)
  - Alopecia [Recovering/Resolving]
  - COVID-19 [Unknown]
  - Off label use [Unknown]
